FAERS Safety Report 8139884-2 (Version None)
Quarter: 2012Q1

REPORT INFORMATION
  Report Type: 
  Country: None (occurrence: None)
  Receive Date: 20120215
  Receipt Date: 20120209
  Transmission Date: 20120608
  Serious: Yes (Death)
  Sender: FDA-Public Use
  Company Number: US-CELGENEUS-163-21880-12011615

PATIENT
  Sex: Male

DRUGS (17)
  1. THALOMID [Suspect]
     Indication: MULTIPLE MYELOMA
     Dosage: 50 MILLIGRAM
     Route: 048
     Dates: start: 20111001
  2. NAPROXEN (ALEVE) [Concomitant]
     Dosage: 220 MILLIGRAM
     Route: 048
  3. MULTI-VITAMIN [Concomitant]
     Dosage: 1
     Route: 048
  4. ONDANSETRON HCL [Concomitant]
     Dosage: 8 MILLIGRAM
     Route: 048
  5. MORPHINE SULFATE [Concomitant]
     Dosage: 120 MILLIGRAM
     Route: 048
  6. MORPHINE SULFATE [Concomitant]
     Indication: PAIN
     Dosage: 4 CC
     Route: 065
  7. DOCUSATE SODIUM [Concomitant]
     Dosage: 500 MILLIGRAM
     Route: 048
  8. DEXAMETHASONE [Concomitant]
     Dosage: 40 MILLIGRAM
     Route: 048
  9. PROCHLORPERAZINE [Concomitant]
     Dosage: 10 MILLIGRAM
     Route: 048
  10. IBUPROFEN (ADVIL) [Concomitant]
     Dosage: 400 MILLIGRAM
     Route: 048
  11. ASPIRIN [Concomitant]
     Dosage: 81 MILLIGRAM
     Route: 048
  12. SENNA [Concomitant]
     Dosage: 8.6 S
     Route: 048
  13. FUROSEMIDE [Concomitant]
     Dosage: 40 MILLIGRAM
     Route: 048
  14. ACYCLOVIR [Concomitant]
     Dosage: 800 MILLIGRAM
     Route: 048
  15. LEXAPRO [Concomitant]
     Dosage: 10 MILLIGRAM
     Route: 048
  16. CALCIUM CARBONATE [Concomitant]
     Dosage: 1
     Route: 048
  17. ZOLPIDEM [Concomitant]
     Dosage: 5 MILLIGRAM
     Route: 048

REACTIONS (1)
  - MULTIPLE MYELOMA [None]
